FAERS Safety Report 5886603-6 (Version None)
Quarter: 2008Q3

REPORT INFORMATION
  Report Type: 
  Country: None (occurrence: None)
  Receive Date: 20080917
  Receipt Date: 20080822
  Transmission Date: 20090109
  Serious: Yes (Other)
  Sender: FDA-Public Use
  Company Number: PHHY2008GB17867

PATIENT
  Age: 43 Year
  Sex: Male

DRUGS (2)
  1. DICLOFENAC [Suspect]
     Indication: LACERATION
     Dosage: UNK
     Route: 048
     Dates: start: 20080728
  2. REVAXIS [Suspect]
     Dosage: 1 DF, ONCE/SINGLE
     Route: 030
     Dates: start: 20080728, end: 20080728

REACTIONS (3)
  - PRURITUS [None]
  - RASH [None]
  - SWELLING FACE [None]
